FAERS Safety Report 4775830-7 (Version None)
Quarter: 2005Q3

REPORT INFORMATION
  Report Type: 
  Country: None (occurrence: None)
  Receive Date: 20050914
  Receipt Date: 20050324
  Transmission Date: 20060218
  Serious: Yes (Death)
  Sender: FDA-Public Use
  Company Number: 163-20785-05030685

PATIENT
  Age: 55 Year
  Sex: Female
  Weight: 59 kg

DRUGS (9)
  1. THALOMID [Suspect]
     Indication: MULTIPLE MYELOMA
     Dosage: 200 MG, DAILY, ORAL;  50 MG, DAILY ORAL
     Route: 048
     Dates: start: 20040821, end: 20040824
  2. THALOMID [Suspect]
     Indication: MULTIPLE MYELOMA
     Dosage: 200 MG, DAILY, ORAL;  50 MG, DAILY ORAL
     Route: 048
     Dates: start: 20040913, end: 20040923
  3. BORTEZOMIB (BORTEZOMIB) [Concomitant]
  4. DEXAMETHASONE [Concomitant]
  5. CISPLATIN [Concomitant]
  6. ADRIAMYCIN PFS [Concomitant]
  7. CYCLOPHOSPHAMIDE [Concomitant]
  8. ETOPOSIDE [Concomitant]
  9. MELPHALAN (MELPHALAN) [Concomitant]

REACTIONS (2)
  - DEATH [None]
  - DISEASE PROGRESSION [None]
